FAERS Safety Report 10186770 (Version 1)
Quarter: 2014Q2

REPORT INFORMATION
  Report Type: Report from Study
  Country: MX (occurrence: MX)
  Receive Date: 20140521
  Receipt Date: 20140521
  Transmission Date: 20141212
  Serious: Yes (Other)
  Sender: FDA-Public Use
  Company Number: PHHY2014MX061100

PATIENT
  Age: 75 Year
  Sex: Male

DRUGS (5)
  1. CO-DIOVAN [Suspect]
     Dosage: 0.5 DF (80/12.5MG), DAILY
     Route: 048
     Dates: start: 201401
  2. GALVUS MET [Suspect]
     Dosage: 1 DF (500/50MG), DAILY
  3. GALVUS MET [Suspect]
     Dosage: 1 DF (850/50MG), DAILY
     Route: 048
     Dates: start: 201401
  4. ASPIRIN PROTECT [Concomitant]
     Dosage: 1 UKN, DAILY
  5. INSULIN [Concomitant]
     Dosage: 10 IU, DAILY

REACTIONS (2)
  - Cerebral infarction [Unknown]
  - Wrong technique in drug usage process [Not Recovered/Not Resolved]
